FAERS Safety Report 5840089-6 (Version None)
Quarter: 2008Q3

REPORT INFORMATION
  Report Type: 
  Country: None (occurrence: None)
  Receive Date: 20080811
  Receipt Date: 20080805
  Transmission Date: 20090109
  Serious: Yes (Hospitalization)
  Sender: FDA-Public Use
  Company Number: B0514883A

PATIENT
  Age: 34 Year
  Sex: Female

DRUGS (4)
  1. RELENZA [Suspect]
     Indication: DRUG USE FOR UNKNOWN INDICATION
     Dosage: 10MG TWICE PER DAY
     Route: 055
     Dates: start: 20080325, end: 20080325
  2. MAGMITT [Concomitant]
     Indication: CONSTIPATION
     Dosage: 330MG PER DAY
     Route: 048
     Dates: start: 20080301, end: 20080329
  3. UNKNOWN DRUG [Concomitant]
     Indication: VULVOVAGINAL CANDIDIASIS
     Route: 067
     Dates: start: 20080301, end: 20080301
  4. EURAX-HYDROCORTISONE [Concomitant]
     Indication: ECZEMA
     Route: 061
     Dates: start: 20080425, end: 20080621

REACTIONS (4)
  - DRUG EXPOSURE DURING PREGNANCY [None]
  - LIVE BIRTH [None]
  - PERINEAL HAEMATOMA [None]
  - PERINEAL PAIN [None]
